FAERS Safety Report 12861576 (Version 1)
Quarter: 2016Q4

REPORT INFORMATION
  Report Type: Spontaneous
  Country: FR (occurrence: FR)
  Receive Date: 20161019
  Receipt Date: 20161019
  Transmission Date: 20170207
  Serious: Yes (Death)
  Sender: FDA-Public Use
  Company Number: FR-PFIZER INC-2016473348

PATIENT
  Age: 70 Year
  Sex: Female

DRUGS (2)
  1. SUTENT [Suspect]
     Active Substance: SUNITINIB MALATE
     Dosage: 50 MG, UNK
  2. DONORMYL /00334102/ [Concomitant]
     Active Substance: DOXYLAMINE SUCCINATE

REACTIONS (2)
  - Cardiogenic shock [Fatal]
  - Cardiotoxicity [Fatal]
